FAERS Safety Report 8227695-9 (Version None)
Quarter: 2012Q1

REPORT INFORMATION
  Report Type: 
  Country: None (occurrence: None)
  Receive Date: 20120322
  Receipt Date: 20120312
  Transmission Date: 20120608
  Serious: Yes (Other)
  Sender: FDA-Public Use
  Company Number: US-SANOFI-AVENTIS-2012SA012383

PATIENT
  Age: 31 Year
  Sex: Female
  Weight: 79 kg

DRUGS (2)
  1. SELENIUM SULFIDE [Suspect]
     Dosage: ONE PILL AT NIGHT
     Route: 061
     Dates: start: 20120216, end: 20120217
  2. ZIAC [Concomitant]
     Dates: start: 20061101

REACTIONS (6)
  - BLISTER [None]
  - DERMATITIS CONTACT [None]
  - LYMPHADENOPATHY [None]
  - PRURITUS [None]
  - BURNING SENSATION [None]
  - EYE SWELLING [None]
